APPROVED DRUG PRODUCT: LURASIDONE HYDROCHLORIDE
Active Ingredient: LURASIDONE HYDROCHLORIDE
Strength: 60MG
Dosage Form/Route: TABLET;ORAL
Application: A212091 | Product #003 | TE Code: AB
Applicant: CHARTWELL RX SCIENCES LLC
Approved: Dec 28, 2020 | RLD: No | RS: No | Type: RX